FAERS Safety Report 22099538 (Version 1)
Quarter: 2023Q1

REPORT INFORMATION
  Report Type: Spontaneous
  Country: JP (occurrence: JP)
  Receive Date: 20230315
  Receipt Date: 20230315
  Transmission Date: 20230418
  Serious: Yes (Hospitalization, Other)
  Sender: FDA-Public Use
  Company Number: JP-AMGEN-JPNSP2023041585

PATIENT
  Age: 70 Year
  Sex: Female

DRUGS (1)
  1. BLINCYTO [Suspect]
     Active Substance: BLINATUMOMAB
     Indication: Acute leukaemia
     Dosage: UNK
     Route: 065

REACTIONS (2)
  - Myeloblast count increased [Recovered/Resolved]
  - Graft versus host disease in skin [Recovered/Resolved]
